FAERS Safety Report 4331102-6 (Version None)
Quarter: 2004Q2

REPORT INFORMATION
  Report Type: 
  Country: None (occurrence: None)
  Receive Date: 20040405
  Receipt Date: 20040331
  Transmission Date: 20050107
  Serious: Yes (Death)
  Sender: FDA-Public Use
  Company Number: 200410707DE

PATIENT
  Sex: 0

DRUGS (2)
  1. ARAVA [Suspect]
     Dates: start: 20030101, end: 20030101
  2. METHOTREXATE [Concomitant]

REACTIONS (1)
  - PNEUMONITIS [None]
